FAERS Safety Report 25321973 (Version 1)
Quarter: 2025Q2

REPORT INFORMATION
  Report Type: Report from Study
  Country: US (occurrence: US)
  Receive Date: 20250516
  Receipt Date: 20250516
  Transmission Date: 20250717
  Serious: No
  Sender: DECIPHERA PHARMACEUTICALS
  Company Number: US-DECIPHERA PHARMACEUTICALS LLC-2025US000421

PATIENT
  Age: 77 Year
  Sex: Male

DRUGS (2)
  1. QINLOCK [Suspect]
     Active Substance: RIPRETINIB
     Indication: Malignant connective tissue neoplasm
     Dosage: 150 MILLIGRAM, QD (1 OR 2 MISSED DOSES)
     Route: 048
     Dates: start: 20230613
  2. QINLOCK [Suspect]
     Active Substance: RIPRETINIB
     Indication: Soft tissue sarcoma
     Dosage: 150 MILLIGRAM, QD
     Route: 048

REACTIONS (7)
  - Feeling abnormal [Unknown]
  - Dizziness [Unknown]
  - Ulcer [Unknown]
  - Dyspepsia [Not Recovered/Not Resolved]
  - Nausea [Unknown]
  - Intentional dose omission [Unknown]
  - Product use in unapproved indication [Unknown]
